FAERS Safety Report 15483963 (Version 6)
Quarter: 2019Q1

REPORT INFORMATION
  Report Type: Report from Study
  Country: ES (occurrence: ES)
  Receive Date: 20181010
  Receipt Date: 20190206
  Transmission Date: 20190417
  Serious: Yes (Hospitalization)
  Sender: FDA-Public Use
  Company Number: ES-CELGENEUS-ESP-20181001079

PATIENT
  Age: 73 Year
  Sex: Male
  Weight: 70 kg

DRUGS (26)
  1. VITAMINE D [Concomitant]
     Active Substance: CHOLECALCIFEROL
     Indication: VITAMIN SUPPLEMENTATION
     Route: 048
     Dates: start: 20181220
  2. ABRAXANE [Suspect]
     Active Substance: PACLITAXEL
     Indication: NON-SMALL CELL LUNG CANCER
     Dosage: 100 MILLIGRAM/SQ. METER
     Route: 041
     Dates: start: 20160928, end: 20161013
  3. ABRAXANE [Suspect]
     Active Substance: PACLITAXEL
     Dosage: 75 MILLIGRAM/SQ. METER
     Route: 041
     Dates: start: 20180919, end: 20181019
  4. ACLIDINIO BROMURO/ FORMOTEROL FUMARATO [Concomitant]
     Indication: CHRONIC OBSTRUCTIVE PULMONARY DISEASE
     Dosage: 340/ 12 UG
     Route: 055
     Dates: start: 20170412
  5. EUTIROX [Concomitant]
     Active Substance: LEVOTHYROXINE SODIUM
     Indication: HYPOTHYROIDISM
     Dosage: 125 MICROGRAM
     Route: 048
     Dates: start: 20180308
  6. TARDYFERON [Concomitant]
     Active Substance: FERROUS SULFATE
     Indication: ANAEMIA
     Dosage: 80 MILLIGRAM
     Route: 048
     Dates: start: 20181024
  7. LORAZEPAM. [Concomitant]
     Active Substance: LORAZEPAM
     Indication: INSOMNIA
     Dosage: 1 MILLIGRAM
     Route: 048
  8. INSULINE LANTUS [Concomitant]
     Indication: TYPE 2 DIABETES MELLITUS
     Dosage: 20 IU (INTERNATIONAL UNIT)
     Route: 058
  9. DEXAMETHASONE. [Concomitant]
     Active Substance: DEXAMETHASONE
     Indication: PREMEDICATION
     Route: 041
     Dates: start: 20160928
  10. PARACETAMOL [Concomitant]
     Active Substance: ACETAMINOPHEN
     Indication: INTESTINAL ISCHAEMIA
     Dosage: 3 GRAM
     Route: 048
     Dates: start: 20181019
  11. ACETYLSALICYLIC ACID [Concomitant]
     Active Substance: ASPIRIN
     Indication: CARDIOVASCULAR EVENT PROPHYLAXIS
     Dosage: 100 MILLIGRAM
     Route: 048
     Dates: start: 201710
  12. ACICLOFENACO [Concomitant]
     Dosage: 200 MILLIGRAM
     Route: 048
     Dates: start: 20181024
  13. ENALAPRIL [Concomitant]
     Active Substance: ENALAPRIL
     Indication: HYPERTENSION
     Dosage: 10 MILLIGRAM
     Route: 048
  14. OMEPRAZOLE. [Concomitant]
     Active Substance: OMEPRAZOLE
     Indication: PROPHYLAXIS
     Dosage: 40 MILLIGRAM
     Route: 048
     Dates: start: 20161201
  15. ACICLOFENACO [Concomitant]
     Indication: MYALGIA
     Dosage: 200 MILLIGRAM
     Route: 048
     Dates: start: 20180725, end: 20180802
  16. ALBUMIN [Concomitant]
     Active Substance: ALBUMIN HUMAN
     Indication: VITAMIN SUPPLEMENTATION
     Route: 048
     Dates: start: 20181224
  17. OLADATEROL/ TIOTROPIUM [Concomitant]
     Indication: CHRONIC OBSTRUCTIVE PULMONARY DISEASE
     Route: 055
     Dates: start: 20170412
  18. BINOCRIT [Concomitant]
     Active Substance: ERYTHROPOIETIN
     Indication: ANAEMIA
     Dosage: 30000 IU (INTERNATIONAL UNIT)
     Route: 058
     Dates: start: 20180118
  19. MEDI4736 (DURVALUMAB) [Suspect]
     Active Substance: DURVALUMAB
     Indication: NON-SMALL CELL LUNG CANCER
     Route: 041
     Dates: start: 20161013, end: 20161013
  20. MEDI4736 (DURVALUMAB) [Suspect]
     Active Substance: DURVALUMAB
     Route: 041
     Dates: start: 20180913, end: 20180913
  21. EUTIROX [Concomitant]
     Active Substance: LEVOTHYROXINE SODIUM
     Dosage: 137 MICROGRAM
     Route: 048
     Dates: start: 20181024
  22. PARACETAMOL [Concomitant]
     Active Substance: ACETAMINOPHEN
     Indication: HEADACHE
     Dosage: 3 GRAM
     Route: 048
     Dates: start: 20170526, end: 20180914
  23. LOPERAMIDE [Concomitant]
     Active Substance: LOPERAMIDE
     Indication: DIARRHOEA
     Route: 065
     Dates: start: 20181213, end: 20181220
  24. METFORMIN [Concomitant]
     Active Substance: METFORMIN HYDROCHLORIDE
     Indication: TYPE 2 DIABETES MELLITUS
     Dosage: 1700 MILLIGRAM
     Route: 048
  25. ONDANSETRON [Concomitant]
     Active Substance: ONDANSETRON
     Indication: PREMEDICATION
     Route: 041
     Dates: start: 2016
  26. APIDRA [Concomitant]
     Active Substance: INSULIN GLULISINE
     Indication: TYPE 2 DIABETES MELLITUS
     Dosage: 6 IU (INTERNATIONAL UNIT)
     Route: 048
     Dates: start: 20181024

REACTIONS (2)
  - Intestinal ischaemia [Recovered/Resolved]
  - Respiratory tract infection [Recovered/Resolved]

NARRATIVE: CASE EVENT DATE: 20181002
